FAERS Safety Report 5329897-8 (Version None)
Quarter: 2007Q2

REPORT INFORMATION
  Report Type: 
  Country: None (occurrence: None)
  Receive Date: 20070517
  Receipt Date: 20070517
  Transmission Date: 20071010
  Serious: Yes (Other)
  Sender: FDA-Public Use
  Company Number: None

PATIENT
  Age: 8 Year
  Sex: Male
  Weight: 23.1334 kg

DRUGS (2)
  1. STRATTERA [Suspect]
     Indication: ATTENTION DEFICIT/HYPERACTIVITY DISORDER
     Dosage: 18MG ONE TIME DOSE PO
     Route: 048
     Dates: start: 20060602, end: 20060602
  2. LORATADINE [Concomitant]

REACTIONS (8)
  - ABDOMINAL PAIN UPPER [None]
  - DIZZINESS [None]
  - DYSTONIA [None]
  - INSOMNIA [None]
  - MUSCLE TWITCHING [None]
  - NAUSEA [None]
  - SOMNOLENCE [None]
  - TIC [None]
